FAERS Safety Report 7086971-6 (Version None)
Quarter: 2010Q4

REPORT INFORMATION
  Report Type: 
  Country: None (occurrence: None)
  Receive Date: 20101106
  Receipt Date: 20101015
  Transmission Date: 20110411
  Serious: No
  Sender: FDA-Public Use
  Company Number: US-WYE-H18208810

PATIENT
  Sex: Female

DRUGS (3)
  1. PREMARIN [Suspect]
     Route: 048
     Dates: start: 20080801, end: 20090101
  2. PREMARIN [Suspect]
     Route: 048
     Dates: start: 20090101
  3. PROPRANOLOL [Concomitant]

REACTIONS (1)
  - DRUG INEFFECTIVE [None]
